FAERS Safety Report 5382779-8 (Version None)
Quarter: 2007Q2

REPORT INFORMATION
  Report Type: 
  Country: None (occurrence: None)
  Receive Date: 20070629
  Receipt Date: 20070419
  Transmission Date: 20071010
  Serious: Yes (Other)
  Sender: FDA-Public Use
  Company Number: US200704004525

PATIENT
  Age: 57 Year
  Sex: Female

DRUGS (2)
  1. HUMALOG [Suspect]
     Indication: DIABETES MELLITUS
  2. HUMULIN N [Suspect]
     Indication: DIABETES MELLITUS

REACTIONS (6)
  - ENDOMETRIAL CANCER [None]
  - GENITAL HAEMORRHAGE [None]
  - MOBILITY DECREASED [None]
  - PELVIC PAIN [None]
  - VAGINAL INFECTION [None]
  - WRIST FRACTURE [None]
